FAERS Safety Report 23369508 (Version 1)
Quarter: 2024Q1

REPORT INFORMATION
  Report Type: Spontaneous
  Country: CN (occurrence: None)
  Receive Date: 20240105
  Receipt Date: 20240105
  Transmission Date: 20240410
  Serious: Yes (Other)
  Sender: FDA-Public Use
  Company Number: 2024A000926

PATIENT
  Age: 17355 Day
  Sex: Female
  Weight: 70 kg

DRUGS (2)
  1. TAGRISSO [Suspect]
     Active Substance: OSIMERTINIB
     Indication: Symptomatic treatment
     Route: 048
     Dates: start: 20230220
  2. TAGRISSO [Suspect]
     Active Substance: OSIMERTINIB
     Indication: Symptomatic treatment
     Route: 048

REACTIONS (4)
  - Cleft lip [Recovering/Resolving]
  - Interstitial lung disease [Recovering/Resolving]
  - Dermatitis acneiform [Recovering/Resolving]
  - Mouth ulceration [Recovering/Resolving]

NARRATIVE: CASE EVENT DATE: 20230401
